FAERS Safety Report 4376953-7 (Version None)
Quarter: 2004Q2

REPORT INFORMATION
  Report Type: 
  Country: None (occurrence: None)
  Receive Date: 20040614
  Receipt Date: 20040604
  Transmission Date: 20050107
  Serious: Yes (Other)
  Sender: FDA-Public Use
  Company Number: US-AMGEN-US079024

PATIENT
  Sex: Male
  Weight: 100.3 kg

DRUGS (10)
  1. EPOGEN [Suspect]
     Indication: DIALYSIS
     Route: 058
     Dates: start: 20000201, end: 20040401
  2. ARANESP [Suspect]
     Indication: DIALYSIS
     Route: 058
     Dates: start: 20040426, end: 20040531
  3. CELLCEPT [Concomitant]
     Dates: start: 20040204, end: 20040603
  4. PROGRAF [Concomitant]
     Dates: start: 20040209
  5. AZATHIOPRINE [Concomitant]
  6. PREDNISONE [Concomitant]
  7. ACYCLOVIR [Concomitant]
  8. PLENDIL [Concomitant]
  9. ALLEGRA [Concomitant]
  10. PRILOSEC [Concomitant]

REACTIONS (4)
  - APLASIA PURE RED CELL [None]
  - MYELODYSPLASTIC SYNDROME [None]
  - PARVOVIRUS INFECTION [None]
  - TRANSPLANT REJECTION [None]
